FAERS Safety Report 9476188 (Version 1)
Quarter: 2013Q3

REPORT INFORMATION
  Report Type: Spontaneous
  Country: IT (occurrence: None)
  Receive Date: 20130821
  Receipt Date: 20130821
  Transmission Date: 20140515
  Serious: Yes (Hospitalization)
  Sender: FDA-Public Use
  Company Number: AUR-APL-2013-06750

PATIENT
  Age: 89 Year
  Sex: Female

DRUGS (3)
  1. CITALOPRAM (CITALOPRAM) [Suspect]
     Indication: DEPRESSION
  2. LEVOSULPIRIDE [Suspect]
     Indication: DYSPEPSIA
     Dosage: 75 MG (25 MG, 3 IN 1 D), UNKNOWN
  3. RAMIPRIL (RAMIPRIL) [Concomitant]

REACTIONS (12)
  - Cardiac arrest [None]
  - Ventricular tachycardia [None]
  - Torsade de pointes [None]
  - Electrocardiogram R on T phenomenon [None]
  - Electrocardiogram QT prolonged [None]
  - Electrocardiogram T wave abnormal [None]
  - Bradycardia [None]
  - Dyspepsia [None]
  - Palpitations [None]
  - Fall [None]
  - Syncope [None]
  - Drug interaction [None]
